FAERS Safety Report 4786534-9 (Version None)
Quarter: 2005Q3

REPORT INFORMATION
  Report Type: 
  Country: None (occurrence: None)
  Receive Date: 20050927
  Receipt Date: 20050707
  Transmission Date: 20060218
  Serious: No
  Sender: FDA-Public Use
  Company Number: USA0507102232

PATIENT
  Age: 40 Year
  Sex: Female
  Weight: 70 kg

DRUGS (1)
  1. STRATTERA [Suspect]
     Indication: ATTENTION DEFICIT/HYPERACTIVITY DISORDER
     Dosage: 25 MG DAY
     Dates: start: 20050620

REACTIONS (6)
  - ACCIDENT AT HOME [None]
  - AGITATION [None]
  - DIZZINESS [None]
  - FATIGUE [None]
  - PARAESTHESIA [None]
  - PILOERECTION [None]
